FAERS Safety Report 8844770 (Version 2)
Quarter: 2013Q2

REPORT INFORMATION
  Report Type: Spontaneous
  Country: US (occurrence: None)
  Receive Date: 20120426
  Receipt Date: 20120703
  Transmission Date: 20140414
  Serious: No
  Sender: FDA-Public Use
  Company Number: PHEH2012US003154

PATIENT
  Age: 49 Year
  Sex: Female

DRUGS (18)
  1. GILENYA [Suspect]
     Indication: MULTIPLE SCLEROSIS
     Route: 048
     Dates: start: 20110818, end: 20110929
  2. BACLOFEN (BACLOFEN) [Concomitant]
  3. TOPAMAX (TOPIRAMATE) [Concomitant]
  4. FISH OIL (FISH OIL) [Concomitant]
  5. CLONAZEPAM (CLONAZEPAM) (CLONAZEPAM) [Concomitant]
  6. SYNTHROID (LEVOTHYROXINE SODIUM) [Concomitant]
  7. RED YEAST RICE [Concomitant]
  8. ADDERALL XR (AMFETAMINE ASPARTATE, AMFETAMINE SULFATE, DEXAMFETAMINE SACCHARATE, DEXAMFETAMINE SULFATE) [Concomitant]
  9. ESTRADIOL (ESTRADIOL) [Concomitant]
  10. SEROQUEL (QUETIAPINE FUMARATE) [Concomitant]
  11. CYTOMEL (LIOTHYRONINE SODIUM) [Concomitant]
  12. REGELAN (CLOFIBRATE) [Concomitant]
  13. KLOR-CON (POTASSIUM CHLORIDE) [Concomitant]
  14. TRAZODONE (TRAZODONE) [Concomitant]
  15. DOCUSATE SODIUM (DOCUSATE SODIUM) [Concomitant]
  16. BELLADONNA AND PHENOBARBITONE (ATROPA BELLADONNA EXTRACT, BELLADONNA EXTRACT, PHENOBARBITAL) [Concomitant]
  17. GABAPENTIN (GABAPENTIN) [Concomitant]
  18. CARDIZEM (SLOW RELEASE (DILITIAZEM HYDROCHLORIDE) [Concomitant]

REACTIONS (10)
  - Pinguecula [None]
  - Eye inflammation [None]
  - Punctate keratitis [None]
  - Optic atrophy [None]
  - Dry eye [None]
  - Visual impairment [None]
  - Metamorphopsia [None]
  - Multiple sclerosis relapse [None]
  - Eye pain [None]
  - Visual acuity reduced [None]
